FAERS Safety Report 19819681 (Version 1)
Quarter: 2021Q3

REPORT INFORMATION
  Report Type: Spontaneous
  Country: JP (occurrence: JP)
  Receive Date: 20210913
  Receipt Date: 20210913
  Transmission Date: 20211014
  Serious: Yes (Death, Hospitalization)
  Sender: FDA-Public Use
  Company Number: JP-TEVA-2021-JP-1952371

PATIENT
  Age: 72 Year
  Sex: Male

DRUGS (6)
  1. BEVACIZUMAB. [Suspect]
     Active Substance: BEVACIZUMAB
     Indication: LUNG ADENOCARCINOMA STAGE IV
     Dosage: RECEIVED A TOTAL OF FOUR CYCLES
     Route: 065
  2. PACLITAXEL. [Suspect]
     Active Substance: PACLITAXEL
     Indication: LUNG ADENOCARCINOMA STAGE IV
     Dosage: RECEIVED A TOTAL OF SEVEN CYCLES
     Route: 065
  3. PEMETREXED. [Suspect]
     Active Substance: PEMETREXED
     Indication: LUNG ADENOCARCINOMA STAGE IV
     Dosage: RECEIVED A TOTAL OF TWO CYCLES
     Route: 065
  4. TS?1 [Suspect]
     Active Substance: GIMERACIL\OTERACIL\TEGAFUR
     Indication: LUNG ADENOCARCINOMA STAGE IV
     Dosage: FOR ONE CYCLE
     Route: 065
  5. TS?1 [Suspect]
     Active Substance: GIMERACIL\OTERACIL\TEGAFUR
     Indication: LUNG ADENOCARCINOMA STAGE IV
     Dosage: RECEIVED FOR TWO CYCLES
     Route: 065
  6. CARBOPLATIN. [Suspect]
     Active Substance: CARBOPLATIN
     Indication: LUNG ADENOCARCINOMA STAGE IV
     Dosage: AUC 5; RECEIVED A TOTAL OF SEVEN CYCLES
     Route: 065

REACTIONS (2)
  - Drug ineffective [Fatal]
  - Pneumatosis intestinalis [Recovered/Resolved]
